FAERS Safety Report 9815829 (Version 2)
Quarter: 2014Q1

REPORT INFORMATION
  Report Type: Report from Study
  Country: US (occurrence: US)
  Receive Date: 20140114
  Receipt Date: 20140114
  Transmission Date: 20141002
  Serious: Yes (Hospitalization, Other)
  Sender: FDA-Public Use
  Company Number: US-ASTELLAS-2014US000258

PATIENT
  Age: 65 Year
  Sex: Female

DRUGS (4)
  1. ERLOTINIB TABLET [Suspect]
     Indication: LUNG NEOPLASM MALIGNANT
     Dosage: 100 MG, UID/QD
     Route: 048
  2. ERLOTINIB TABLET [Suspect]
     Dosage: 150 MG, UID/QD
     Route: 048
  3. ERLOTINIB TABLET [Suspect]
     Dosage: 150 MG ONE TABLET ONE DAY, AND 1.5 TABLET NEXT DAY
     Route: 048
     Dates: start: 20131226
  4. ERLOTINIB TABLET [Suspect]
     Dosage: 75 MG, QOD
     Route: 048
     Dates: start: 20131227, end: 20140103

REACTIONS (13)
  - Incorrect dose administered [Unknown]
  - Overdose [Unknown]
  - Dizziness [Not Recovered/Not Resolved]
  - Gait disturbance [Unknown]
  - Amnesia [Unknown]
  - Speech disorder [Unknown]
  - Activities of daily living impaired [Unknown]
  - Abasia [Not Recovered/Not Resolved]
  - Memory impairment [Not Recovered/Not Resolved]
  - Hypersomnia [Not Recovered/Not Resolved]
  - Rash [Not Recovered/Not Resolved]
  - Diarrhoea [Not Recovered/Not Resolved]
  - Rash [Recovered/Resolved]
